FAERS Safety Report 5567357-X (Version None)
Quarter: 2007Q4

REPORT INFORMATION
  Report Type: 
  Country: None (occurrence: None)
  Receive Date: 20071214
  Receipt Date: 20071130
  Transmission Date: 20080405
  Serious: Yes (Hospitalization)
  Sender: FDA-Public Use
  Company Number: 230051M07FRA

PATIENT
  Age: 58 Year
  Sex: Male

DRUGS (8)
  1. REBIF [Suspect]
     Indication: MULTIPLE SCLEROSIS
     Dosage: 44 MCG, 3 IN 1 WEEKS, SUBCUTANEOUS
     Route: 058
     Dates: start: 20020101, end: 20071026
  2. REBIF [Suspect]
     Indication: MULTIPLE SCLEROSIS
     Dosage: 44 MCG, 3 IN 1 WEEKS, SUBCUTANEOUS
     Route: 058
     Dates: start: 20071116
  3. ADVIL [Concomitant]
  4. DITROPAN (OXYBUTYNIN /00538901/) [Concomitant]
  5. AMLODIPINE BESYLATE [Concomitant]
  6. ZOXAN (DOXAZOSIN) [Concomitant]
  7. EDUCTYL (EDUCTYL) [Concomitant]
  8. TRANSIPEG (TRANSIPEG/01618701/) [Concomitant]

REACTIONS (11)
  - ANAEMIA [None]
  - DIALYSIS [None]
  - DRUG TOXICITY [None]
  - DYSPNOEA [None]
  - HAEMOLYSIS [None]
  - HYPERTENSIVE CRISIS [None]
  - PULMONARY OEDEMA [None]
  - RENAL FAILURE ACUTE [None]
  - RENAL IMPAIRMENT [None]
  - THROMBOCYTOPENIA [None]
  - THROMBOTIC MICROANGIOPATHY [None]
